FAERS Safety Report 7712977-7 (Version None)
Quarter: 2011Q3

REPORT INFORMATION
  Report Type: 
  Country: None (occurrence: None)
  Receive Date: 20110826
  Receipt Date: 20110818
  Transmission Date: 20111222
  Serious: No
  Sender: FDA-Public Use
  Company Number: JP-ABBOTT-11P-087-0730528-00

PATIENT
  Sex: Male
  Weight: 51 kg

DRUGS (6)
  1. PREDNISOLONE [Concomitant]
     Indication: CROHN'S DISEASE
     Route: 048
  2. HUMIRA [Suspect]
     Dates: start: 20110209, end: 20110209
  3. HUMIRA [Suspect]
     Indication: CROHN'S DISEASE
     Dates: start: 20110128, end: 20110128
  4. HUMIRA [Suspect]
     Dates: start: 20110223, end: 20110420
  5. DEXAMETHASONE SODIUM PHOSPHATE [Concomitant]
     Indication: CROHN'S DISEASE
     Dates: start: 20110425, end: 20110426
  6. MESALAMINE [Concomitant]
     Indication: CROHN'S DISEASE
     Route: 048

REACTIONS (1)
  - CROHN'S DISEASE [None]
